FAERS Safety Report 11711457 (Version 1)
Quarter: 2015Q4

REPORT INFORMATION
  Report Type: Spontaneous
  Country: US (occurrence: US)
  Receive Date: 20151104
  Receipt Date: 20151104
  Transmission Date: 20160304
  Serious: No
  Sender: FDA-Public Use
  Company Number: US-ELI_LILLY_AND_COMPANY-US201105002285

PATIENT
  Sex: Female

DRUGS (2)
  1. FORTEO [Suspect]
     Active Substance: TERIPARATIDE
     Dosage: 20 UG, QD
  2. FORTEO [Suspect]
     Active Substance: TERIPARATIDE
     Indication: OSTEOPOROSIS
     Dosage: 20 UG, QD

REACTIONS (12)
  - Hypotension [Unknown]
  - Bone disorder [Unknown]
  - Fatigue [Unknown]
  - Injection site erythema [Not Recovered/Not Resolved]
  - Vertigo [Unknown]
  - Drug dose omission [Unknown]
  - Dizziness [Unknown]
  - Nausea [Unknown]
  - Feeling abnormal [Unknown]
  - Sarcoidosis [Unknown]
  - Hypoacusis [Unknown]
  - Asthenia [Unknown]
